FAERS Safety Report 7653079-8 (Version None)
Quarter: 2011Q3

REPORT INFORMATION
  Report Type: 
  Country: None (occurrence: None)
  Receive Date: 20110803
  Receipt Date: 20110727
  Transmission Date: 20111222
  Serious: Yes (Other)
  Sender: FDA-Public Use
  Company Number: JP-ROCHE-794350

PATIENT

DRUGS (2)
  1. CLONAZEPAM [Suspect]
     Indication: EPILEPSY
     Route: 064
  2. VALPROATE SODIUM [Suspect]
     Indication: EPILEPSY
     Route: 064

REACTIONS (2)
  - MATERNAL EXPOSURE DURING PREGNANCY [None]
  - STILLBIRTH [None]
